FAERS Safety Report 4358364-3 (Version None)
Quarter: 2004Q2

REPORT INFORMATION
  Report Type: 
  Country: None (occurrence: None)
  Receive Date: 20040512
  Receipt Date: 20040512
  Transmission Date: 20050107
  Serious: Yes (Other)
  Sender: FDA-Public Use
  Company Number: None

PATIENT
  Age: 23 Year
  Sex: Female

DRUGS (1)
  1. OMNIPAQUE 350 [Suspect]
     Dosage: 150 CC I.V.
     Route: 042

REACTIONS (3)
  - BRONCHOSPASM [None]
  - ERYTHEMA [None]
  - PRURITUS [None]
